FAERS Safety Report 14964311 (Version 2)
Quarter: 2018Q2

REPORT INFORMATION
  Report Type: Report from Study
  Country: ES (occurrence: ES)
  Receive Date: 20180601
  Receipt Date: 20180607
  Transmission Date: 20180711
  Serious: Yes (Death, Hospitalization, Other)
  Sender: FDA-Public Use
  Company Number: ES-MYLANLABS-2018M1035381

PATIENT
  Age: 56 Year
  Sex: Female
  Weight: 58 kg

DRUGS (2)
  1. TACROLIMUS. [Suspect]
     Active Substance: TACROLIMUS
     Indication: PRODUCT USED FOR UNKNOWN INDICATION
     Dosage: UNK, UNKNOWN FREQ.
     Route: 065
  2. ACICLOVIR [Suspect]
     Active Substance: ACYCLOVIR
     Indication: HERPES VIRUS INFECTION
     Dosage: 800 MG, BID
     Route: 048
     Dates: start: 20150513, end: 20150516

REACTIONS (8)
  - Chronic graft versus host disease in liver [Fatal]
  - Sepsis [Recovered/Resolved]
  - Chronic graft versus host disease in intestine [Fatal]
  - Febrile neutropenia [Recovered/Resolved]
  - Acute graft versus host disease in skin [Recovered/Resolved]
  - Acute graft versus host disease in intestine [Recovered/Resolved]
  - Agranulocytosis [Fatal]
  - Transplant failure [Fatal]

NARRATIVE: CASE EVENT DATE: 20141030
